FAERS Safety Report 7878952-7 (Version None)
Quarter: 2011Q4

REPORT INFORMATION
  Report Type: 
  Country: None (occurrence: None)
  Receive Date: 20111101
  Receipt Date: 20111018
  Transmission Date: 20120403
  Serious: Yes (Hospitalization)
  Sender: FDA-Public Use
  Company Number: PHHY2011IN91752

PATIENT
  Age: 53 Year
  Sex: Female

DRUGS (2)
  1. ZOLEDRONOC ACID [Suspect]
     Dosage: 5 MG/ 100ML
     Route: 042
     Dates: start: 20091201
  2. ZOLEDRONOC ACID [Suspect]
     Dosage: 5 MG/ 100ML
     Route: 042
     Dates: start: 20101201

REACTIONS (2)
  - WRIST FRACTURE [None]
  - FALL [None]
